FAERS Safety Report 5964289-X (Version None)
Quarter: 2008Q4

REPORT INFORMATION
  Report Type: 
  Country: None (occurrence: None)
  Receive Date: 20081124
  Receipt Date: 20081114
  Transmission Date: 20090506
  Serious: Yes (Hospitalization, Other)
  Sender: FDA-Public Use
  Company Number: GB-PFIZER INC-2008097533

PATIENT
  Age: 60 Year
  Sex: Female
  Weight: 87 kg

DRUGS (1)
  1. CHANTIX [Suspect]
     Indication: SMOKING CESSATION THERAPY
     Route: 048
     Dates: start: 20080908, end: 20081018

REACTIONS (4)
  - ABDOMINAL PAIN UPPER [None]
  - HEPATITIS CHOLESTATIC [None]
  - PANCREATITIS ACUTE [None]
  - VOMITING [None]
